FAERS Safety Report 4503122-X (Version None)
Quarter: 2004Q4

REPORT INFORMATION
  Report Type: 
  Country: None (occurrence: None)
  Receive Date: 20041112
  Receipt Date: 20041102
  Transmission Date: 20050328
  Serious: Yes (Disabling)
  Sender: FDA-Public Use
  Company Number: 200410697BNE

PATIENT
  Age: 81 Year
  Sex: Female

DRUGS (7)
  1. CIPROFLOXACIN [Suspect]
     Indication: KNEE ARTHROPLASTY
     Dosage: 750 MG, BID, ORAL
     Route: 048
     Dates: start: 20040211, end: 20041020
  2. CIPROFLOXACIN [Suspect]
     Indication: POSTOPERATIVE INFECTION
     Dosage: 750 MG, BID, ORAL
     Route: 048
     Dates: start: 20040211, end: 20041020
  3. ATENOLOL [Concomitant]
  4. DIPYRIDAMOLE [Concomitant]
  5. FUROSEMIDE [Concomitant]
  6. SPIRONOLACTONE [Concomitant]
  7. RANITIDINE [Concomitant]

REACTIONS (5)
  - ARTHROPATHY [None]
  - ASTHENIA [None]
  - MUSCLE ATROPHY [None]
  - MYOPATHY [None]
  - MYOSITIS [None]
